FAERS Safety Report 13941648 (Version 2)
Quarter: 2017Q3

REPORT INFORMATION
  Report Type: Report from Study
  Country: ES (occurrence: ES)
  Receive Date: 20170906
  Receipt Date: 20170921
  Transmission Date: 20171127
  Serious: Yes (Life-Threatening, Hospitalization)
  Sender: FDA-Public Use
  Company Number: US-ASTRAZENECA-2017SE90871

PATIENT
  Age: 26751 Day
  Sex: Female

DRUGS (26)
  1. CHLORHEXIDINE [Concomitant]
     Active Substance: CHLORHEXIDINE
     Indication: DENTAL DISORDER PROPHYLAXIS
     Route: 061
     Dates: start: 20170423
  2. GRANISETRON [Concomitant]
     Active Substance: GRANISETRON
     Indication: PROPHYLAXIS OF NAUSEA AND VOMITING
     Route: 041
     Dates: start: 20170807, end: 20170813
  3. MACROGOL [Concomitant]
     Active Substance: POLYETHYLENE GLYCOLS
     Indication: CONSTIPATION
     Dosage: 13.125 G GRAM
     Route: 048
     Dates: start: 20170807, end: 20170828
  4. FUROSEMIDE. [Concomitant]
     Active Substance: FUROSEMIDE
     Indication: OEDEMA PERIPHERAL
     Route: 048
     Dates: start: 20170902, end: 20170904
  5. MEDI4736 (DURVALUMAB) [Suspect]
     Active Substance: DURVALUMAB
     Indication: MYELODYSPLASTIC SYNDROME
     Route: 041
     Dates: start: 20170703, end: 20170703
  6. DEXCHLORPHENIRAMINE [Concomitant]
     Active Substance: DEXCHLORPHENIRAMINE
     Indication: PROPHYLAXIS
     Route: 041
     Dates: start: 20170807, end: 20170807
  7. POSACONAZOLE [Concomitant]
     Active Substance: POSACONAZOLE
     Indication: ANTIFUNGAL PROPHYLAXIS
     Route: 048
     Dates: start: 20170828
  8. AZACITIDINE. [Suspect]
     Active Substance: AZACITIDINE
     Indication: MYELODYSPLASTIC SYNDROME
     Dosage: 75 MG/M2, SEVEN SEPARATE DOSES FOR FOUR WEEKS
     Route: 058
     Dates: start: 20170703, end: 20170709
  9. EBASTINE [Concomitant]
     Active Substance: EBASTINE
     Indication: SEASONAL ALLERGY
     Route: 048
     Dates: start: 20170427, end: 20170828
  10. MEDI4736 (DURVALUMAB) [Suspect]
     Active Substance: DURVALUMAB
     Indication: MYELODYSPLASTIC SYNDROME
     Route: 041
     Dates: start: 20170807
  11. AZACITIDINE. [Suspect]
     Active Substance: AZACITIDINE
     Indication: MYELODYSPLASTIC SYNDROME
     Dosage: 75 MG/M2, SEVEN SEPARATE DOSES FOR FOUR WEEKS
     Route: 058
     Dates: start: 20170807
  12. OMEPRAZOLE. [Concomitant]
     Active Substance: OMEPRAZOLE
     Indication: GASTRITIS PROPHYLAXIS
     Route: 048
     Dates: start: 20170427, end: 20170828
  13. PARACETAMOL [Concomitant]
     Active Substance: ACETAMINOPHEN
     Indication: PYREXIA
     Route: 041
     Dates: start: 20170807, end: 20170807
  14. PARACETAMOL [Concomitant]
     Active Substance: ACETAMINOPHEN
     Indication: PYREXIA
     Route: 041
     Dates: start: 20170828, end: 20170828
  15. SIMVASTATIN. [Concomitant]
     Active Substance: SIMVASTATIN
     Indication: HYPERCHOLESTEROLAEMIA
     Route: 048
     Dates: start: 20170531, end: 20170828
  16. LORAZEPAM. [Concomitant]
     Active Substance: LORAZEPAM
     Indication: PROPHYLAXIS
     Route: 048
     Dates: start: 20170904
  17. PARACETAMOL [Concomitant]
     Active Substance: ACETAMINOPHEN
     Indication: PYREXIA
     Route: 065
     Dates: start: 20170427
  18. MEDI4736 (DURVALUMAB) [Suspect]
     Active Substance: DURVALUMAB
     Indication: MYELODYSPLASTIC SYNDROME
     Route: 041
     Dates: start: 20170420, end: 20170420
  19. AZACITIDINE. [Suspect]
     Active Substance: AZACITIDINE
     Indication: MYELODYSPLASTIC SYNDROME
     Dosage: 75 MG/M2, SEVEN SEPARATE DOSES FOR FOUR WEEKS
     Route: 058
     Dates: start: 20170420, end: 20170426
  20. CHLORHEXIDINE [Concomitant]
     Active Substance: CHLORHEXIDINE
     Indication: INFECTION PROPHYLAXIS
     Route: 061
     Dates: start: 20170423
  21. TIOTROPIUM [Concomitant]
     Active Substance: TIOTROPIUM
     Indication: PROPHYLAXIS
     Route: 055
     Dates: start: 20170531, end: 20170828
  22. NYSTATIN. [Concomitant]
     Active Substance: NYSTATIN
     Indication: DENTAL DISORDER PROPHYLAXIS
     Route: 061
     Dates: start: 20170423
  23. OMEPRAZOLE. [Concomitant]
     Active Substance: OMEPRAZOLE
     Indication: GASTRITIS PROPHYLAXIS
     Route: 048
     Dates: start: 20170904
  24. PARACETAMOL [Concomitant]
     Active Substance: ACETAMINOPHEN
     Indication: PYREXIA
     Dosage: 500 CC
     Route: 041
  25. LACTULOSE. [Concomitant]
     Active Substance: LACTULOSE
     Indication: CONSTIPATION
     Dosage: 10 MG
     Route: 048
     Dates: start: 20170626, end: 20170807
  26. POSACONAZOLE [Concomitant]
     Active Substance: POSACONAZOLE
     Indication: ANTIFUNGAL PROPHYLAXIS
     Route: 048
     Dates: start: 20170731, end: 20170807

REACTIONS (2)
  - Febrile neutropenia [Recovered/Resolved]
  - Transformation to acute myeloid leukaemia [Not Recovered/Not Resolved]

NARRATIVE: CASE EVENT DATE: 20170828
